FAERS Safety Report 4530078-6 (Version None)
Quarter: 2004Q4

REPORT INFORMATION
  Report Type: 
  Country: None (occurrence: None)
  Receive Date: 20041215
  Receipt Date: 20041215
  Transmission Date: 20050328
  Serious: Yes (Other)
  Sender: FDA-Public Use
  Company Number: None

PATIENT
  Age: 14 Year
  Sex: Female
  Weight: 79.3795 kg

DRUGS (1)
  1. FLUOXETINE [Suspect]
     Indication: DYSTHYMIC DISORDER
     Dosage: DAILY
     Dates: start: 20010918, end: 20020908

REACTIONS (4)
  - DEPRESSION [None]
  - FEELING OF DESPAIR [None]
  - MOOD ALTERED [None]
  - SUICIDAL IDEATION [None]
